FAERS Safety Report 8979506 (Version 1)
Quarter: 2012Q4

REPORT INFORMATION
  Report Type: Report from Study
  Country: DE (occurrence: DE)
  Receive Date: 20121221
  Receipt Date: 20121221
  Transmission Date: 20130627
  Serious: Yes (Hospitalization)
  Sender: FDA-Public Use
  Company Number: DE-BAXTER-2012BAX027202

PATIENT
  Age: 45 Year
  Sex: Female
  Weight: 96 kg

DRUGS (3)
  1. ENDOXAN 1G [Suspect]
     Indication: BREAST CANCER
     Dosage: 600 mg/m2
     Route: 042
     Dates: start: 20090513
  2. BEVACIZUMAB [Suspect]
     Indication: BREAST CANCER
     Dosage: 90 mg/m2
     Route: 042
     Dates: start: 20090513
  3. EPIRUBICIN [Suspect]
     Indication: BREAST CANCER
     Route: 042
     Dates: start: 20090513

REACTIONS (1)
  - Pulmonary embolism [Recovered/Resolved]
